FAERS Safety Report 11356732 (Version 1)
Quarter: 2015Q3

REPORT INFORMATION
  Report Type: Spontaneous
  Country: US (occurrence: US)
  Receive Date: 20150803
  Receipt Date: 20150803
  Transmission Date: 20151125
  Serious: No
  Sender: FDA-Public Use
  Company Number: US-ELI_LILLY_AND_COMPANY-US201210001418

PATIENT
  Age: 23 Year
  Sex: Female

DRUGS (1)
  1. STRATTERA [Suspect]
     Active Substance: ATOMOXETINE HYDROCHLORIDE
     Dosage: 25 MG, UNK
     Dates: start: 20121002

REACTIONS (9)
  - Xanthopsia [Unknown]
  - Balance disorder [Unknown]
  - Dry mouth [Unknown]
  - Euphoric mood [Unknown]
  - Headache [Unknown]
  - Nausea [Unknown]
  - Dizziness [Unknown]
  - Hallucination [Unknown]
  - Dyspnoea [Unknown]

NARRATIVE: CASE EVENT DATE: 20121002
